FAERS Safety Report 12761042 (Version 2)
Quarter: 2016Q3

REPORT INFORMATION
  Report Type: Spontaneous
  Country: US (occurrence: US)
  Receive Date: 20160920
  Receipt Date: 20160928
  Transmission Date: 20161109
  Serious: No
  Sender: FDA-Public Use
  Company Number: US-ASTRAZENECA-2016SE96556

PATIENT
  Age: 17719 Day
  Sex: Female
  Weight: 78.5 kg

DRUGS (6)
  1. TUDORZA PRESSAIR [Suspect]
     Active Substance: ACLIDINIUM BROMIDE
     Indication: COUGH
     Dosage: 400MCG 1 PUFF TWICE A DAY
     Route: 055
     Dates: start: 20160904
  2. TUDORZA PRESSAIR [Suspect]
     Active Substance: ACLIDINIUM BROMIDE
     Indication: BRONCHIAL IRRITATION
     Dosage: 400MCG 1 PUFF TWICE A DAY
     Route: 055
     Dates: start: 20160904
  3. ABILIFY [Concomitant]
     Active Substance: ARIPIPRAZOLE
     Indication: SCHIZOPHRENIA
     Route: 048
  4. VESICARE [Concomitant]
     Active Substance: SOLIFENACIN SUCCINATE
     Indication: HYPERTONIC BLADDER
     Route: 048
  5. VENLAFAXINE [Concomitant]
     Active Substance: VENLAFAXINE HYDROCHLORIDE
     Indication: SCHIZOPHRENIA
     Route: 048
  6. TUDORZA PRESSAIR [Suspect]
     Active Substance: ACLIDINIUM BROMIDE
     Indication: CHRONIC DISEASE
     Dosage: 400MCG 1 PUFF TWICE A DAY
     Route: 055
     Dates: start: 20160904

REACTIONS (8)
  - Hypersensitivity [Unknown]
  - Product use issue [Unknown]
  - Fatigue [Unknown]
  - Off label use [Unknown]
  - Swelling [Unknown]
  - Device malfunction [Unknown]
  - Intentional product misuse [Unknown]
  - Dermatitis allergic [Recovering/Resolving]

NARRATIVE: CASE EVENT DATE: 20160907
